FAERS Safety Report 4773497-5 (Version None)
Quarter: 2005Q3

REPORT INFORMATION
  Report Type: 
  Country: None (occurrence: None)
  Receive Date: 20050920
  Receipt Date: 20050912
  Transmission Date: 20060218
  Serious: Yes (Hospitalization)
  Sender: FDA-Public Use
  Company Number: GB-BRISTOL-MYERS SQUIBB COMPANY-13108097

PATIENT
  Age: 59 Year
  Sex: Male
  Weight: 47 kg

DRUGS (4)
  1. CISPLATIN [Suspect]
     Indication: OROPHARYNGEAL CANCER STAGE UNSPECIFIED
     Route: 042
     Dates: start: 20050629, end: 20050629
  2. MORPHINE [Concomitant]
     Indication: CANCER PAIN
     Route: 058
  3. MUCAINE [Concomitant]
     Indication: PHARYNGOLARYNGEAL PAIN
     Route: 048
  4. DIFFLAM [Concomitant]
     Indication: ORAL PAIN
     Route: 048

REACTIONS (1)
  - NEUTROPENIC SEPSIS [None]
